FAERS Safety Report 21617701 (Version 2)
Quarter: 2022Q4

REPORT INFORMATION
  Report Type: Spontaneous
  Country: PT (occurrence: PT)
  Receive Date: 20221119
  Receipt Date: 20221220
  Transmission Date: 20230113
  Serious: Yes (Hospitalization, Other)
  Sender: FDA-Public Use
  Company Number: PT-MYLANLABS-2022M1119662

PATIENT
  Age: 84 Year
  Sex: Female

DRUGS (1)
  1. AMIODARONE [Suspect]
     Active Substance: AMIODARONE
     Indication: Atrial fibrillation
     Dosage: 200 MILLIGRAM, ONCE A DAY(200 MILLIGRAM, QD (200MG/DAY FOR 4 YEARS))
     Route: 065

REACTIONS (3)
  - Pneumonitis chemical [Recovered/Resolved]
  - Cardiac failure [Unknown]
  - Pneumonia [Unknown]
